FAERS Safety Report 23880319 (Version 1)
Quarter: 2024Q2

REPORT INFORMATION
  Report Type: Spontaneous
  Country: US (occurrence: US)
  Receive Date: 20240521
  Receipt Date: 20240521
  Transmission Date: 20240715
  Serious: No
  Sender: FDA-Public Use
  Company Number: US-TAKEDA-2024TUS048318

PATIENT
  Age: 2 Year
  Sex: Male

DRUGS (3)
  1. ADZYNMA [Suspect]
     Active Substance: ADAMTS13, RECOMBINANT-KRHN
     Indication: ADAMTS13 activity decreased
     Dosage: 40 INTERNATIONAL UNIT/KILOGRAM
     Route: 042
     Dates: start: 202405
  2. ADZYNMA [Suspect]
     Active Substance: ADAMTS13, RECOMBINANT-KRHN
     Dosage: 20 INTERNATIONAL UNIT/KILOGRAM
     Route: 042
     Dates: start: 202405
  3. ADZYNMA [Suspect]
     Active Substance: ADAMTS13, RECOMBINANT-KRHN
     Dosage: 15 INTERNATIONAL UNIT/KILOGRAM
     Route: 042
     Dates: start: 202405

REACTIONS (3)
  - Inhibiting antibodies positive [Unknown]
  - ADAMTS13 activity decreased [Unknown]
  - Somnolence [Unknown]
